FAERS Safety Report 9165973 (Version 1)
Quarter: 2013Q1

REPORT INFORMATION
  Report Type: Spontaneous
  Country: US (occurrence: US)
  Receive Date: 20130315
  Receipt Date: 20130315
  Transmission Date: 20140127
  Serious: Yes (Hospitalization)
  Sender: FDA-Public Use
  Company Number: US-GLAXOSMITHKLINE-A1015125A

PATIENT
  Age: 42 Year
  Sex: Female

DRUGS (3)
  1. LAMOTRIGINE [Suspect]
     Indication: DEPRESSION
     Dosage: 75MG PER DAY
     Route: 048
     Dates: start: 201208
  2. GEODON [Suspect]
     Indication: DEPRESSION
  3. BIRTH CONTROL PILL [Concomitant]

REACTIONS (14)
  - Suicidal ideation [Unknown]
  - Feeling abnormal [Unknown]
  - Crying [Unknown]
  - Insomnia [Unknown]
  - Anxiety [Unknown]
  - Formication [Unknown]
  - Depression [Unknown]
  - Alopecia [Unknown]
  - Confusional state [Unknown]
  - Adverse event [Unknown]
  - Disturbance in attention [Unknown]
  - Mood swings [Unknown]
  - Mental disorder [Unknown]
  - Anxiety [Unknown]
